FAERS Safety Report 7365139-X (Version None)
Quarter: 2011Q1

REPORT INFORMATION
  Report Type: 
  Country: None (occurrence: None)
  Receive Date: 20110321
  Receipt Date: 20110317
  Transmission Date: 20110831
  Serious: Yes (Death, Hospitalization, Other)
  Sender: FDA-Public Use
  Company Number: US-AMGEN LTD.-QUU437009

PATIENT
  Age: 94 Year
  Sex: Male

DRUGS (29)
  1. CLINDAMYCIN [Concomitant]
  2. FERROUS GLUCONATE [Concomitant]
     Dosage: 324 MG, QOD
  3. GUAIFENESIN [Concomitant]
     Dosage: 600 MG, QOD
  4. ASCORBIC ACID [Concomitant]
     Dosage: 500 MG, QD
  5. FLUCONAZOLE [Concomitant]
     Dosage: 100 MG, QD
  6. COENZYME Q10 [Concomitant]
     Dosage: 30 MG, QD
  7. NEPHRO-VITE [Concomitant]
     Dosage: UNK UNK, UNK
  8. CYANOCOBALAMIN [Concomitant]
     Dosage: 1000 A?G, QD
  9. TYLENOL (CAPLET) [Concomitant]
  10. ZOFRAN [Concomitant]
  11. AZTREONAM [Concomitant]
  12. CIPROFLOXACIN [Concomitant]
  13. NPLATE [Suspect]
     Indication: IDIOPATHIC THROMBOCYTOPENIC PURPURA
     Dosage: 1 A?G/KG, UNK
     Dates: start: 20090730, end: 20101208
  14. CORTICOSTEROID NOS [Concomitant]
  15. SERTRALINE HYDROCHLORIDE [Concomitant]
     Dosage: 50 MG, QD
  16. SENNA [Concomitant]
     Dosage: UNK UNK, UNK
  17. SODIUM CHLORIDE [Concomitant]
  18. OMEPRAZOLE [Concomitant]
     Dosage: 20 MG, QD
  19. ACETAMINOPHEN AND HYDROCODONE BITARTRATE [Concomitant]
  20. IPRATROPIUM BROMIDE/ALBUTEROL SULFATE [Concomitant]
  21. DUONEB [Concomitant]
  22. DOCUSATE SODIUM [Concomitant]
     Dosage: 100 MG, QD
  23. GABAPEN [Concomitant]
     Dosage: 1200 MG, UNK
  24. SIMVASTATIN [Concomitant]
     Dosage: 20 MG, QD
  25. WOOL FAT [Concomitant]
  26. MIRALAX [Concomitant]
     Dosage: 17 G, QD
  27. PREDNISONE [Concomitant]
     Dosage: 5 MG, QD
  28. FUROSEMIDE [Concomitant]
     Dosage: 80 MG, QD
  29. MORPHINE [Concomitant]

REACTIONS (20)
  - NEUROPATHY PERIPHERAL [None]
  - URINARY RETENTION [None]
  - ENCEPHALOPATHY [None]
  - HYPERNATRAEMIA [None]
  - CELLULITIS [None]
  - DYSPHAGIA [None]
  - DELIRIUM [None]
  - ECCHYMOSIS [None]
  - PNEUMONITIS [None]
  - PNEUMONIA [None]
  - EYE INFECTION FUNGAL [None]
  - HYPERLIPIDAEMIA [None]
  - OEDEMA PERIPHERAL [None]
  - ASPIRATION [None]
  - DISSEMINATED INTRAVASCULAR COAGULATION [None]
  - DIARRHOEA [None]
  - THROMBOCYTOPENIA [None]
  - RENAL FAILURE ACUTE [None]
  - DEEP VEIN THROMBOSIS [None]
  - HYPOKALAEMIA [None]
